FAERS Safety Report 4336127-2 (Version None)
Quarter: 2004Q2

REPORT INFORMATION
  Report Type: 
  Country: None (occurrence: None)
  Receive Date: 20040409
  Receipt Date: 20040323
  Transmission Date: 20050107
  Serious: Yes (Life-Threatening, Hospitalization, Disabling)
  Sender: FDA-Public Use
  Company Number: JP-MERCK-0403USA02141

PATIENT
  Age: 73 Year
  Sex: Female

DRUGS (6)
  1. CARBAZOCHROME SODIUM SULFONATE [Concomitant]
     Indication: HAEMOPTYSIS
     Route: 065
     Dates: start: 20040225
  2. CARBAZOCHROME SODIUM SULFONATE [Concomitant]
     Route: 065
     Dates: start: 20040225
  3. PRIMAXIN [Suspect]
     Indication: PNEUMONIA
     Route: 042
     Dates: start: 20040225, end: 20040227
  4. MICAFUNGIN [Concomitant]
     Indication: BRONCHOPULMONARY ASPERGILLOSIS
     Route: 065
     Dates: start: 20040225, end: 20040305
  5. MINOCYCLINE HYDROCHLORIDE [Concomitant]
     Indication: PNEUMONIA
     Route: 065
     Dates: start: 20040225, end: 20040227
  6. TRANEXAMIC ACID [Concomitant]
     Indication: HAEMOPTYSIS
     Route: 065
     Dates: start: 20040225

REACTIONS (2)
  - RENAL FAILURE [None]
  - THROMBOTIC THROMBOCYTOPENIC PURPURA [None]
